FAERS Safety Report 4843848-1 (Version None)
Quarter: 2005Q4

REPORT INFORMATION
  Report Type: 
  Country: None (occurrence: None)
  Receive Date: 20051130
  Receipt Date: 20051130
  Transmission Date: 20060501
  Serious: Yes (Hospitalization, Other)
  Sender: FDA-Public Use
  Company Number: None

PATIENT
  Age: 47 Year
  Sex: Female

DRUGS (2)
  1. CIPROFLOXACIN [Suspect]
     Indication: KIDNEY INFECTION
     Dosage: ORAL X 2 DAILY
     Route: 048
     Dates: start: 20051101
  2. CIPROFLOXACIN [Suspect]
     Indication: KIDNEY INFECTION
     Dosage: ORAL X 2 DAILY
     Route: 048
     Dates: start: 20051105

REACTIONS (8)
  - DIFFICULTY IN WALKING [None]
  - DYSURIA [None]
  - PAIN [None]
  - SKIN ATROPHY [None]
  - SKIN DISCOLOURATION [None]
  - SKIN EXFOLIATION [None]
  - SKIN HAEMORRHAGE [None]
  - VAGINAL PAIN [None]
